FAERS Safety Report 11349008 (Version 1)
Quarter: 2015Q3

REPORT INFORMATION
  Report Type: Report from Study
  Country: DE (occurrence: DE)
  Receive Date: 20150807
  Receipt Date: 20150807
  Transmission Date: 20151125
  Serious: Yes (Hospitalization)
  Sender: FDA-Public Use
  Company Number: DE-ROCHE-1618269

PATIENT
  Age: 57 Year
  Sex: Female

DRUGS (3)
  1. METHOTREXATE [Concomitant]
     Active Substance: METHOTREXATE
     Indication: RHEUMATOID ARTHRITIS
     Route: 065
  2. TOCILIZUMAB [Suspect]
     Active Substance: TOCILIZUMAB
     Indication: RHEUMATOID ARTHRITIS
     Route: 065
     Dates: start: 201104
  3. TOCILIZUMAB [Suspect]
     Active Substance: TOCILIZUMAB
     Route: 065

REACTIONS (3)
  - Intervertebral disc protrusion [Unknown]
  - Spinal column stenosis [Unknown]
  - Radiculopathy [Unknown]

NARRATIVE: CASE EVENT DATE: 20140703
